FAERS Safety Report 9350528 (Version 1)
Quarter: 2013Q2

REPORT INFORMATION
  Report Type: Spontaneous
  Country: CN (occurrence: CN)
  Receive Date: 20130617
  Receipt Date: 20130617
  Transmission Date: 20140414
  Serious: Yes (Other)
  Sender: FDA-Public Use
  Company Number: CN-JNJFOC-20130605574

PATIENT
  Age: 72 Year
  Sex: Male

DRUGS (1)
  1. TYLENOL COLD [Suspect]
     Indication: UPPER RESPIRATORY TRACT INFECTION
     Dosage: 9:20
     Route: 048
     Dates: start: 20121010, end: 20121010

REACTIONS (3)
  - Anaphylactoid reaction [Recovered/Resolved]
  - Acne [None]
  - Pruritus generalised [None]
